FAERS Safety Report 6829855-8 (Version None)
Quarter: 2010Q3

REPORT INFORMATION
  Report Type: 
  Country: None (occurrence: None)
  Receive Date: 20100710
  Receipt Date: 20071127
  Transmission Date: 20110219
  Serious: Yes (Other)
  Sender: FDA-Public Use
  Company Number: GB-JNJFOC-20100701190

PATIENT
  Age: 18 Year
  Sex: Female

DRUGS (5)
  1. ACETAMINOPHEN AND CODEINE PHOSPHATE [Suspect]
     Indication: PUBIC PAIN
     Route: 048
  2. ACETAMINOPHEN AND CODEINE PHOSPHATE [Suspect]
     Dosage: AS NECESSARY
     Route: 048
  3. DICLOFENAC SODIUM [Suspect]
     Indication: PUBIC PAIN
     Dosage: 3/ 1 DAYS
     Route: 065
  4. AMOXICILLIN [Concomitant]
     Indication: TOOTH EXTRACTION
     Route: 048
  5. FERROUS SULFATE TAB [Concomitant]
     Indication: ANAEMIA
     Dosage: 1 DAY
     Route: 048

REACTIONS (2)
  - DRUG EXPOSURE DURING PREGNANCY [None]
  - INTRA-UTERINE DEATH [None]
